FAERS Safety Report 16721594 (Version 1)
Quarter: 2019Q3

REPORT INFORMATION
  Report Type: Spontaneous
  Country: BR (occurrence: BR)
  Receive Date: 20190820
  Receipt Date: 20190820
  Transmission Date: 20191005
  Serious: Yes (Other)
  Sender: FDA-Public Use
  Company Number: BR-ABBVIE-19P-020-2856752-00

PATIENT
  Sex: Male
  Weight: 112 kg

DRUGS (6)
  1. ROHYPNOL [Suspect]
     Active Substance: FLUNITRAZEPAM
     Indication: SEDATIVE THERAPY
  2. VENLAFAXINE [Concomitant]
     Active Substance: VENLAFAXINE HYDROCHLORIDE
     Indication: ANXIETY
  3. DIVALCON ER [Suspect]
     Active Substance: DIVALPROEX SODIUM
     Indication: AFFECTIVE DISORDER
     Dosage: DAILY DOSE: 1 TABLET TWICE DAILY (AT MORNING/NIGHT)?250 MG
     Route: 048
  4. ROHYPNOL [Suspect]
     Active Substance: FLUNITRAZEPAM
     Indication: ANXIETY
     Dosage: DAILY DOSE: 1 TABLET TWICE DAILY (AT MORNING/NIGHT)
     Route: 048
     Dates: start: 20190601
  5. DIVALCON ER [Suspect]
     Active Substance: DIVALPROEX SODIUM
     Indication: DEPRESSION
  6. VENLAFAXINE [Concomitant]
     Active Substance: VENLAFAXINE HYDROCHLORIDE
     Indication: DEPRESSION
     Dosage: DAILY DOSE:1 CAP AT MORNING/NIGHT; DOESN^T REMEMBER START OR END DATE. TAKEN FOR 2 MONTH
     Route: 048

REACTIONS (6)
  - Dysentery [Unknown]
  - Product quality issue [Unknown]
  - Inappropriate schedule of product administration [Unknown]
  - Product use in unapproved indication [Unknown]
  - Product residue present [Not Recovered/Not Resolved]
  - Dry mouth [Unknown]
